FAERS Safety Report 6598085-X (Version None)
Quarter: 2010Q1

REPORT INFORMATION
  Report Type: 
  Country: None (occurrence: None)
  Receive Date: 20100216
  Receipt Date: 20100208
  Transmission Date: 20100710
  Serious: Yes (Other)
  Sender: FDA-Public Use
  Company Number: 2010SP006240

PATIENT
  Age: 5 Year
  Weight: 18 kg

DRUGS (4)
  1. DESLORATADINE [Suspect]
     Dosage: 4 ML; BID; PO
     Route: 048
     Dates: start: 20100127
  2. TOPLEXIL [Concomitant]
  3. PYRANTEL PAMOATE [Concomitant]
  4. PROCATEROL HCL [Concomitant]

REACTIONS (2)
  - HAEMOPTYSIS [None]
  - OVERDOSE [None]
